FAERS Safety Report 25810795 (Version 1)
Quarter: 2025Q3

REPORT INFORMATION
  Report Type: Spontaneous
  Country: CN (occurrence: CN)
  Receive Date: 20250917
  Receipt Date: 20250917
  Transmission Date: 20251021
  Serious: Yes (Life-Threatening)
  Sender: GE HEALTHCARE
  Company Number: None

PATIENT
  Age: 32 Year
  Sex: Female
  Weight: 55 kg

DRUGS (1)
  1. OMNIPAQUE [Suspect]
     Active Substance: IOHEXOL
     Indication: Computerised tomogram neck
     Route: 040
     Dates: start: 20250910, end: 20250910

REACTIONS (10)
  - Tinnitus [Recovering/Resolving]
  - Hypotension [Recovering/Resolving]
  - Breath sounds abnormal [Recovering/Resolving]
  - Headache [Recovering/Resolving]
  - Abdominal pain [Recovering/Resolving]
  - Abdominal discomfort [Recovering/Resolving]
  - Vomiting [Recovering/Resolving]
  - Nausea [Recovering/Resolving]
  - Flushing [Recovering/Resolving]
  - Pyrexia [Recovering/Resolving]

NARRATIVE: CASE EVENT DATE: 20250910
